FAERS Safety Report 7513950-4 (Version None)
Quarter: 2011Q2

REPORT INFORMATION
  Report Type: 
  Country: None (occurrence: None)
  Receive Date: 20110531
  Receipt Date: 20091120
  Transmission Date: 20111010
  Serious: Yes (Other)
  Sender: FDA-Public Use
  Company Number: US-BAYER-200940964NA

PATIENT
  Age: 61 Year
  Sex: Male
  Weight: 104 kg

DRUGS (28)
  1. FUROSEMIDE [Concomitant]
     Dosage: 100 MG, UNK
     Route: 042
     Dates: start: 20030623
  2. FENTANYL [Concomitant]
     Dosage: 1100 MCG
     Route: 042
     Dates: start: 20030623
  3. ETOMIDATE [Concomitant]
     Dosage: 16 MG, UNK
     Route: 042
     Dates: start: 20030623
  4. TRANEXAMIC ACID [Concomitant]
     Dosage: 5000 MG, UNK
     Route: 042
     Dates: start: 20030623
  5. DOBUTAMINE HYDROCHLORIDE [Concomitant]
     Dosage: UNK
     Route: 042
     Dates: start: 20030623
  6. LOPRESSOR [Concomitant]
     Dosage: 10 MG, UNK
     Route: 042
     Dates: start: 20030623
  7. KLOR-CON [Concomitant]
  8. CEFAZOLIN [Concomitant]
     Dosage: 1000 MG, UNK
     Route: 042
     Dates: start: 20030623
  9. INSULIN [Concomitant]
     Dosage: UNK
     Route: 042
     Dates: start: 20030623
  10. ZOLOFT [Concomitant]
  11. MAGNESIUM SULFATE [Concomitant]
     Dosage: 2 G, UNK
     Route: 042
     Dates: start: 20030623
  12. PROTAMINE SULFATE [Concomitant]
     Dosage: 550 MG, UNK
     Dates: start: 20030623
  13. NITROGLYCERIN [Concomitant]
     Dosage: UNK
     Route: 042
     Dates: start: 20030623
  14. ENALAPRIL [Concomitant]
     Dosage: 5 MG, UNK
  15. CALCIUM CHLORIDE [Concomitant]
     Dosage: 1000 MG, UNK
     Route: 042
     Dates: start: 20030623
  16. NOREPINEPHRINE BITARTRATE [Concomitant]
     Dosage: UNK
     Route: 042
     Dates: start: 20030623
  17. AVANDIA [Concomitant]
  18. CRESTOR [Concomitant]
  19. HEPARIN SODIUM [Concomitant]
     Dosage: 53000 U, UNK
     Route: 042
     Dates: start: 20030623
  20. SODIUM NITROPRUSSIDE [Concomitant]
     Dosage: UNK
     Route: 042
     Dates: start: 20030623
  21. FUROSEMIDE [Concomitant]
  22. LOPRESSOR [Concomitant]
  23. ACETYLSALICYLIC ACID SRT [Concomitant]
  24. MIDAZOLAM HCL [Concomitant]
     Dosage: 7.5 MG, UNK
     Route: 042
     Dates: start: 20030623
  25. PANCURONIUM BROMIDE [Concomitant]
     Dosage: 20 MG, UNK
     Dates: start: 20030623
  26. TRASYLOL [Suspect]
     Indication: CORONARY ARTERY BYPASS
     Dosage: UNK
     Route: 042
     Dates: start: 20030623
  27. DIOVAN HCT [Concomitant]
     Route: 048
  28. GLYCOMET [Concomitant]

REACTIONS (11)
  - FEAR [None]
  - ANHEDONIA [None]
  - RENAL INJURY [None]
  - DISABILITY [None]
  - ANXIETY [None]
  - RENAL FAILURE [None]
  - UNEVALUABLE EVENT [None]
  - PAIN [None]
  - DEPRESSION [None]
  - MULTI-ORGAN FAILURE [None]
  - INJURY [None]
